FAERS Safety Report 8369050-7 (Version None)
Quarter: 2012Q2

REPORT INFORMATION
  Report Type: 
  Country: None (occurrence: None)
  Receive Date: 20120518
  Receipt Date: 20120508
  Transmission Date: 20120825
  Serious: Yes (Hospitalization)
  Sender: FDA-Public Use
  Company Number: DE-ROCHE-1069200

PATIENT
  Sex: Male
  Weight: 96 kg

DRUGS (11)
  1. ACTIVASE [Suspect]
     Indication: CEREBROVASCULAR ACCIDENT
  2. LEVOTHYROXINE SODIUM [Concomitant]
     Dosage: DAILY DOSE: 75
  3. APIDRA [Concomitant]
  4. LANTUS [Concomitant]
  5. ALLOBETA [Concomitant]
  6. METOPROLOL TARTRATE AND HYDROCHLOROTHIAZIDE [Concomitant]
     Dosage: DAILY DOSE: 95
  7. TORSEMIDE [Concomitant]
  8. ASPIRIN [Concomitant]
     Dosage: DOSE: 300
  9. FLUVASTATIN [Concomitant]
  10. ISMN [Concomitant]
  11. OLMESARTAN MEDOXOMIL [Concomitant]
     Dosage: DAILY DOSE: 20/25 MG

REACTIONS (2)
  - CHEST PAIN [None]
  - HYPERTENSION [None]
